FAERS Safety Report 12272640 (Version 3)
Quarter: 2016Q2

REPORT INFORMATION
  Report Type: Report from Study
  Country: CA (occurrence: CA)
  Receive Date: 20160415
  Receipt Date: 20160517
  Transmission Date: 20160815
  Serious: Yes (Hospitalization)
  Sender: FDA-Public Use
  Company Number: CA-HLSUS-2016-CA-000007

PATIENT
  Sex: Female

DRUGS (1)
  1. CLOZARIL [Suspect]
     Active Substance: CLOZAPINE
     Indication: SCHIZOPHRENIA
     Dosage: 100 MG AM AND 200 MG PM
     Route: 048
     Dates: start: 20070406

REACTIONS (4)
  - Headache [Unknown]
  - Neutropenia [Unknown]
  - Cervix neoplasm [Unknown]
  - White blood cell count decreased [Recovered/Resolved]
